FAERS Safety Report 18971036 (Version 2)
Quarter: 2024Q3

REPORT INFORMATION
  Report Type: Spontaneous
  Country: CA (occurrence: CA)
  Receive Date: 20210304
  Receipt Date: 20240809
  Transmission Date: 20241017
  Serious: Yes (Hospitalization, Other)
  Sender: MERCK
  Company Number: CA-009507513-2103CAN000692

PATIENT
  Age: 3 Day
  Sex: Female
  Weight: 3 kg

DRUGS (7)
  1. ISENTRESS [Suspect]
     Active Substance: RALTEGRAVIR POTASSIUM
     Indication: HIV infection
     Dosage: 400MG BID PO (FREQUENCY: EVERY DAYS||QD)
     Route: 064
     Dates: start: 20200217, end: 2020
  2. TRUVADA [Suspect]
     Active Substance: EMTRICITABINE\TENOFOVIR DISOPROXIL FUMARATE
     Indication: HIV infection
     Dosage: 300+200MG QD PO
     Route: 064
     Dates: start: 20200217, end: 2020
  3. LAMIVUDINE [Suspect]
     Active Substance: LAMIVUDINE
     Indication: Prophylaxis against HIV infection
     Dosage: 7.25 MILLIGRAM, 2 EVERY 1 DAYS; DOSAGE FORM: NOT SPECIFIED
     Route: 048
     Dates: start: 2020
  4. NEVIRAPINE [Suspect]
     Active Substance: NEVIRAPINE
     Indication: Prophylaxis against HIV infection
     Dosage: 34.3 MILLIGRAM, 1 EVERY 1 DAYS; DOSAGE FORM: NOT SPECIFIED
     Route: 048
     Dates: start: 2020
  5. ZIDOVUDINE [Suspect]
     Active Substance: ZIDOVUDINE
     Indication: Prophylaxis against HIV infection
     Dosage: 15.0 MILLIGRAM, 1 EVERY 12 HOURS; DOSAGE FORM: NOT SPECIFIED
     Route: 048
     Dates: start: 2020
  6. LABETALOL [Concomitant]
     Active Substance: LABETALOL\LABETALOL HYDROCHLORIDE
     Dosage: 100 MILLIGRAM, TID, PO; FORM: NOT SPECIFIED; TAKEN BY THE MOTHER DURING PREGNANCY
     Route: 064
  7. NIFEDIPINE [Concomitant]
     Active Substance: NIFEDIPINE
     Dosage: 30 MILLIGRAM, BID, PO; DOSAGE FORM: NOT SPECIFIED||TAKEN BY THE MOTHER DURING PREGNANCY
     Route: 064
     Dates: start: 2020

REACTIONS (3)
  - Alanine aminotransferase increased [Recovered/Resolved]
  - Hepatic enzyme increased [Recovered/Resolved]
  - Respiratory distress [Recovered/Resolved]

NARRATIVE: CASE EVENT DATE: 20200101
